FAERS Safety Report 23352336 (Version 1)
Quarter: 2023Q4

REPORT INFORMATION
  Report Type: Spontaneous
  Country: None (occurrence: US)
  Receive Date: 20231229
  Receipt Date: 20231229
  Transmission Date: 20240109
  Serious: No
  Sender: FDA-Public Use
  Company Number: US-Marksans Pharma Limited-2149949

PATIENT
  Age: 49 Year
  Sex: Female
  Weight: 96.364 kg

DRUGS (1)
  1. IBUPROFEN [Suspect]
     Active Substance: IBUPROFEN
     Indication: Inflammation
     Route: 048

REACTIONS (1)
  - Drug ineffective [None]
